FAERS Safety Report 8221245-9 (Version None)
Quarter: 2012Q1

REPORT INFORMATION
  Report Type: 
  Country: None (occurrence: None)
  Receive Date: 20120320
  Receipt Date: 20120313
  Transmission Date: 20120608
  Serious: Yes (Hospitalization, Other)
  Sender: FDA-Public Use
  Company Number: PHHY2011CA02820

PATIENT
  Sex: Male

DRUGS (2)
  1. SANDOSTATIN LAR [Suspect]
     Indication: NEUROENDOCRINE TUMOUR
     Dosage: 30 MG, QMO
     Route: 030
     Dates: start: 20100922
  2. SANDOSTATIN LAR [Suspect]
     Dosage: 30 MG EVERY 4 WEEKS
     Route: 030

REACTIONS (13)
  - DYSPNOEA EXERTIONAL [None]
  - BLOOD PRESSURE DECREASED [None]
  - ABDOMINAL DISTENSION [None]
  - HEART RATE DECREASED [None]
  - HEPATIC NEOPLASM [None]
  - OEDEMA [None]
  - LUNG INFECTION [None]
  - RESPIRATORY RATE INCREASED [None]
  - OEDEMA PERIPHERAL [None]
  - PRURITUS [None]
  - BRONCHITIS [None]
  - NEOPLASM MALIGNANT [None]
  - COUGH [None]
